FAERS Safety Report 16132429 (Version 1)
Quarter: 2019Q1

REPORT INFORMATION
  Report Type: Spontaneous
  Country: US (occurrence: US)
  Receive Date: 20190226
  Receipt Date: 20190226
  Transmission Date: 20190418
  Serious: Yes (Hospitalization, Other)
  Sender: FDA-Public Use
  Company Number: None

PATIENT
  Age: 56 Year
  Sex: Female

DRUGS (11)
  1. IDELALISIB VS PLACEBO [Suspect]
     Active Substance: IDELALISIB
     Indication: LYMPHOMA
     Route: 048
     Dates: start: 20181217, end: 20190115
  2. MORPHINE [Concomitant]
     Active Substance: MORPHINE
  3. SULFAMETHOXAZOLE-TRIMETHOPRIM [Concomitant]
     Active Substance: SULFAMETHOXAZOLE\TRIMETHOPRIM
  4. DIGOXIN. [Concomitant]
     Active Substance: DIGOXIN
  5. ACYCLOVIR. [Concomitant]
     Active Substance: ACYCLOVIR
  6. HYDROCORTISONE-NYSTATIN-ZINC OXIDE [Concomitant]
  7. METRONIDAZOLE. [Concomitant]
     Active Substance: METRONIDAZOLE
  8. PANTOPRAZOLE [Concomitant]
     Active Substance: PANTOPRAZOLE
  9. AMIODARONE [Concomitant]
     Active Substance: AMIODARONE
  10. VITAMIN B COMPLEX-VITAMIN C-FOLIC ACID [Concomitant]
  11. MICAFUNGIN. [Concomitant]
     Active Substance: MICAFUNGIN SODIUM

REACTIONS (12)
  - Ejection fraction decreased [None]
  - Physical deconditioning [None]
  - Clostridium difficile colitis [None]
  - Disseminated intravascular coagulation [None]
  - Atrial fibrillation [None]
  - Arterial insufficiency [None]
  - Inflammation [None]
  - Cardiogenic shock [None]
  - Renal failure [None]
  - Dialysis [None]
  - Graft versus host disease in gastrointestinal tract [None]
  - Intracardiac thrombus [None]

NARRATIVE: CASE EVENT DATE: 20190117
